FAERS Safety Report 22525738 (Version 1)
Quarter: 2023Q2

REPORT INFORMATION
  Report Type: Spontaneous
  Country: US (occurrence: None)
  Receive Date: 20230605
  Receipt Date: 20230605
  Transmission Date: 20230722
  Serious: No
  Sender: FDA-Public Use
  Company Number: None

PATIENT
  Age: 30 Year
  Sex: Male

DRUGS (2)
  1. VENLAFAXINE [Suspect]
     Active Substance: VENLAFAXINE HYDROCHLORIDE
  2. CANDESARTAN [Suspect]
     Active Substance: CANDESARTAN

REACTIONS (3)
  - Dizziness [None]
  - Nausea [None]
  - Hypotension [None]

NARRATIVE: CASE EVENT DATE: 20230602
